FAERS Safety Report 4384312-6 (Version None)
Quarter: 2004Q2

REPORT INFORMATION
  Report Type: 
  Country: None (occurrence: None)
  Receive Date: 20040624
  Receipt Date: 20031225
  Transmission Date: 20050107
  Serious: Yes (Death, Life-Threatening, Hospitalization)
  Sender: FDA-Public Use
  Company Number: 200311600JP

PATIENT
  Age: 79 Year
  Sex: Female
  Weight: 28 kg

DRUGS (10)
  1. ARAVA [Suspect]
     Indication: RHEUMATOID ARTHRITIS
     Route: 048
     Dates: start: 20031119, end: 20040209
  2. AMLODIN [Suspect]
     Indication: HYPERTENSION
     Route: 048
     Dates: end: 20031203
  3. BENET [Suspect]
     Indication: OSTEOPOROSIS
     Route: 048
     Dates: end: 20031213
  4. MEDROL [Concomitant]
     Indication: RHEUMATOID ARTHRITIS
     Route: 048
     Dates: end: 20040209
  5. EPADEL [Concomitant]
     Indication: HYPERLIPIDAEMIA
     Route: 048
     Dates: end: 20040209
  6. PROMAC /JPN/ [Concomitant]
     Indication: GASTRITIS
     Route: 048
     Dates: end: 20031213
  7. ALTAT [Concomitant]
     Indication: GASTRITIS
     Route: 048
     Dates: end: 20031212
  8. ALTAT [Concomitant]
     Indication: REFLUX OESOPHAGITIS
     Route: 048
     Dates: end: 20031212
  9. LANSOPRAZOLE [Concomitant]
     Indication: REFLUX OESOPHAGITIS
     Route: 048
     Dates: start: 20031213, end: 20040209
  10. MUCOSTA [Concomitant]
     Indication: GASTRITIS
     Route: 048
     Dates: start: 20031213, end: 20040209

REACTIONS (47)
  - ABDOMINAL PAIN UPPER [None]
  - ACUTE RESPIRATORY DISTRESS SYNDROME [None]
  - ANAEMIA [None]
  - ANOREXIA [None]
  - ASPARTATE AMINOTRANSFERASE INCREASED [None]
  - ASTHENIA [None]
  - BLOOD ALKALINE PHOSPHATASE INCREASED [None]
  - BLOOD CREATINE PHOSPHOKINASE INCREASED [None]
  - BRAIN NATRIURETIC PEPTIDE INCREASED [None]
  - CARDIO-RESPIRATORY ARREST [None]
  - CARDIOMYOPATHY [None]
  - CARDIOPULMONARY FAILURE [None]
  - CHEST PAIN [None]
  - CHEST X-RAY ABNORMAL [None]
  - CHOLESTASIS [None]
  - CONJUNCTIVAL HAEMORRHAGE [None]
  - CREPITATIONS [None]
  - CYSTITIS [None]
  - DEHYDRATION [None]
  - DEPRESSED LEVEL OF CONSCIOUSNESS [None]
  - DIARRHOEA [None]
  - DIZZINESS [None]
  - DYSPEPSIA [None]
  - DYSPHORIA [None]
  - GENERAL PHYSICAL HEALTH DETERIORATION [None]
  - HAEMOGLOBIN DECREASED [None]
  - IMMUNE SYSTEM DISORDER [None]
  - INTERSTITIAL LUNG DISEASE [None]
  - LEFT VENTRICULAR FAILURE [None]
  - LYMPHOCYTE COUNT DECREASED [None]
  - MARKEDLY REDUCED DIETARY INTAKE [None]
  - NASOPHARYNGITIS [None]
  - NEPHROPATHY [None]
  - OSTEOPOROSIS [None]
  - PLATELET COUNT DECREASED [None]
  - PLEURAL EFFUSION [None]
  - PLEURAL FIBROSIS [None]
  - POLYMYOSITIS [None]
  - PROTEIN URINE [None]
  - PROTEIN URINE PRESENT [None]
  - RED BLOOD CELL COUNT DECREASED [None]
  - RENAL FAILURE [None]
  - RESPIRATORY FAILURE [None]
  - SERUM FERRITIN INCREASED [None]
  - SPINAL CORD COMPRESSION [None]
  - SUBCUTANEOUS EMPHYSEMA [None]
  - UPPER RESPIRATORY TRACT INFECTION [None]
